FAERS Safety Report 9209612 (Version 1)
Quarter: 2013Q2

REPORT INFORMATION
  Report Type: Spontaneous
  Country: TR (occurrence: TR)
  Receive Date: 20130404
  Receipt Date: 20130404
  Transmission Date: 20140414
  Serious: Yes (Other)
  Sender: FDA-Public Use
  Company Number: TR-VERTEX PHARMACEUTICALS INC.-2013-004447

PATIENT
  Age: 7 Decade
  Sex: Female

DRUGS (3)
  1. INCIVO [Suspect]
     Indication: CHRONIC HEPATITIS C
     Dosage: START DATE: INITIATED 40 DAYS BEFORE THE REPORTING TIME
     Route: 048
     Dates: start: 201302, end: 2013
  2. RIBAVIRIN [Suspect]
     Indication: HEPATITIS C
     Dosage: START DATE: INITIATED 40 DAYS BEFORE THE REPORTING TIME
     Dates: start: 201302, end: 2013
  3. PEG INTERFERON [Suspect]
     Indication: HEPATITIS C
     Dosage: START DATE: INITIATED 40 DAYS BEFORE THE REPORTING TIME
     Dates: start: 201302, end: 2013

REACTIONS (1)
  - Rash [Unknown]
